FAERS Safety Report 19261503 (Version 1)
Quarter: 2021Q2

REPORT INFORMATION
  Report Type: Report from Study
  Country: DO (occurrence: DO)
  Receive Date: 20210515
  Receipt Date: 20210515
  Transmission Date: 20210717
  Serious: Yes (Other)
  Sender: FDA-Public Use
  Company Number: NVSC2021DO103598

PATIENT
  Age: 101 Year
  Sex: Female

DRUGS (1)
  1. CO?DIOVAN [Suspect]
     Active Substance: HYDROCHLOROTHIAZIDE\VALSARTAN
     Indication: PRODUCT USED FOR UNKNOWN INDICATION
     Dosage: UNK (320 MG VALSARTAN/ 25 MG HYDROCHLOROTHIAZIDE)
     Route: 065

REACTIONS (3)
  - Accident [Unknown]
  - Fall [Unknown]
  - Deafness [Unknown]
